FAERS Safety Report 17424959 (Version 1)
Quarter: 2020Q1

REPORT INFORMATION
  Report Type: Spontaneous
  Country: US (occurrence: US)
  Receive Date: 20200217
  Receipt Date: 20200217
  Transmission Date: 20200409
  Serious: Yes (Hospitalization, Other)
  Sender: FDA-Public Use
  Company Number: US-CORCEPT THERAPEUTICS INC.-US-2020CRT000139

PATIENT
  Age: 57 Year
  Sex: Female

DRUGS (3)
  1. MIFEPRISTONE [Suspect]
     Active Substance: MIFEPRISTONE
     Indication: CUSHING^S SYNDROME
     Dosage: 300 MG, QD
     Route: 048
  2. MIFEPRISTONE [Suspect]
     Active Substance: MIFEPRISTONE
     Dosage: 900 MG, QD
     Route: 048
  3. MIFEPRISTONE [Suspect]
     Active Substance: MIFEPRISTONE
     Dosage: 600 MG, QD
     Route: 048

REACTIONS (4)
  - Hypokalaemia [Recovered/Resolved]
  - Blood thyroid stimulating hormone increased [Unknown]
  - Fluid overload [Unknown]
  - Metabolic alkalosis [Unknown]
